FAERS Safety Report 22351324 (Version 4)
Quarter: 2024Q2

REPORT INFORMATION
  Report Type: Spontaneous
  Country: US (occurrence: US)
  Receive Date: 20230522
  Receipt Date: 20240517
  Transmission Date: 20240716
  Serious: No
  Sender: FDA-Public Use
  Company Number: US-Stemline Therapeutics, Inc.-2023ST000584

PATIENT
  Age: 69 Year
  Sex: Female

DRUGS (2)
  1. ORSERDU [Suspect]
     Active Substance: ELACESTRANT
     Indication: Product used for unknown indication
     Route: 048
     Dates: start: 20230331
  2. ORSERDU [Suspect]
     Active Substance: ELACESTRANT
     Dosage: 172 MG (2 TABLETS OF 86 MG) ONCE DAILY
     Route: 048
     Dates: start: 202304

REACTIONS (7)
  - Hypersensitivity [Not Recovered/Not Resolved]
  - Alopecia [Unknown]
  - Speech disorder [Not Recovered/Not Resolved]
  - Drug hypersensitivity [Unknown]
  - Intentional product use issue [Not Recovered/Not Resolved]
  - Insomnia [Unknown]
  - Cough [Not Recovered/Not Resolved]
